FAERS Safety Report 8797318 (Version 3)
Quarter: 2013Q4

REPORT INFORMATION
  Report Type: Spontaneous
  Country: US (occurrence: US)
  Receive Date: 20120919
  Receipt Date: 20131003
  Transmission Date: 20140711
  Serious: Yes (Other)
  Sender: FDA-Public Use
  Company Number: US-009507513-1209USA005737

PATIENT
  Sex: Female

DRUGS (2)
  1. MAXALT [Suspect]
     Indication: MIGRAINE
     Dosage: 10 MG, UNK
     Route: 048
     Dates: end: 201203
  2. MAXALT MLT [Suspect]
     Indication: MIGRAINE
     Dosage: 10 MG, UNK
     Route: 048
     Dates: end: 201203

REACTIONS (4)
  - Myocardial infarction [Recovered/Resolved]
  - Adverse reaction [Recovered/Resolved]
  - Cardiac disorder [Recovered/Resolved]
  - Vein disorder [Recovered/Resolved]
